FAERS Safety Report 15701762 (Version 1)
Quarter: 2018Q4

REPORT INFORMATION
  Report Type: Spontaneous
  Country: GB (occurrence: GB)
  Receive Date: 20181208
  Receipt Date: 20181208
  Transmission Date: 20190205
  Serious: Yes (Hospitalization, Other)
  Sender: FDA-Public Use
  Company Number: GB-TORRENT-00019721

PATIENT
  Age: 75 Year
  Sex: Male

DRUGS (4)
  1. RASAGILINE. [Suspect]
     Active Substance: RASAGILINE
     Indication: PARKINSON^S DISEASE
     Dosage: UNKNOWN
  2. ATROPINE. [Suspect]
     Active Substance: ATROPINE
     Indication: DROOLING
     Dosage: EYE DROPS 10 MG/ML ONCE DAILY
     Route: 060
  3. PRAMIPEXOLE. [Suspect]
     Active Substance: PRAMIPEXOLE
     Indication: PARKINSON^S DISEASE
     Dosage: MODIFIED RELEASE (DOPAMINE AGONIST)
  4. STALEVO [Suspect]
     Active Substance: CARBIDOPA\ENTACAPONE\LEVODOPA
     Indication: PARKINSON^S DISEASE
     Dosage: UNKNOWN

REACTIONS (11)
  - Off label use [Unknown]
  - Delirium [Recovered/Resolved]
  - Road traffic accident [Recovered/Resolved]
  - Paranoia [Recovered/Resolved]
  - Dysarthria [Recovered/Resolved]
  - Gait disturbance [Recovered/Resolved]
  - Psychotic disorder [Recovered/Resolved]
  - Fall [Recovered/Resolved]
  - Hallucination, auditory [Recovered/Resolved]
  - Condition aggravated [Recovered/Resolved]
  - Hallucination, visual [Recovered/Resolved]
